FAERS Safety Report 4417647-9 (Version None)
Quarter: 2004Q2

REPORT INFORMATION
  Report Type: 
  Country: None (occurrence: None)
  Receive Date: 20040625
  Receipt Date: 20040505
  Transmission Date: 20050107
  Serious: Yes (Other)
  Sender: FDA-Public Use
  Company Number: 206135

PATIENT
  Age: 37 Year
  Sex: Male

DRUGS (4)
  1. AVASTIN [Suspect]
     Indication: GASTROINTESTINAL CARCINOMA
     Dosage: 620 MG, Q2W, INTRAVENOUS
     Route: 042
     Dates: start: 20040408, end: 20040430
  2. LEUCOVORIN CALCIUM [Concomitant]
  3. OXALIPLATIN [Concomitant]
  4. FLUOROURACIL [Concomitant]

REACTIONS (1)
  - DEEP VEIN THROMBOSIS [None]
